FAERS Safety Report 20472834 (Version 1)
Quarter: 2022Q1

REPORT INFORMATION
  Report Type: Spontaneous
  Country: EG (occurrence: EG)
  Receive Date: 20220215
  Receipt Date: 20220215
  Transmission Date: 20220423
  Serious: Yes (Life-Threatening, Hospitalization, Other)
  Sender: FDA-Public Use
  Company Number: EG-NOVOPROD-889444

PATIENT
  Sex: Male

DRUGS (6)
  1. DAPAGLIFLOZIN [Concomitant]
     Active Substance: DAPAGLIFLOZIN
     Indication: Type 2 diabetes mellitus
     Dosage: 10 MG, QD
     Route: 048
     Dates: start: 202107
  2. GLUCOVANCE [GLIBENCLAMIDE;METFORMIN HYDROCHLORIDE] [Concomitant]
     Indication: Type 2 diabetes mellitus
     Dosage: 5/1000 MG/DAY
     Route: 048
     Dates: start: 202103
  3. METHYLPREDNISOLONE SODIUM SUCCINATE [Concomitant]
     Active Substance: METHYLPREDNISOLONE SODIUM SUCCINATE
     Dosage: 40 MG, QD (SINCE HOSPITALIZATION)
     Route: 048
  4. METHYLPREDNISOLONE SODIUM SUCCINATE [Concomitant]
     Active Substance: METHYLPREDNISOLONE SODIUM SUCCINATE
     Indication: Sarcoidosis
     Dosage: 1/2 TABLET A DAY (10 MG)
     Route: 048
  5. TRESIBA [Suspect]
     Active Substance: INSULIN DEGLUDEC
     Dosage: 40-45 IU/NIGHT ACCORDING TO MEAL CONTENT
     Route: 058
  6. TRESIBA [Suspect]
     Active Substance: INSULIN DEGLUDEC
     Indication: Type 2 diabetes mellitus
     Dosage: 30-35 IU/NIGHT
     Route: 058
     Dates: start: 202107

REACTIONS (2)
  - COVID-19 [Not Recovered/Not Resolved]
  - Hyperglycaemia [Recovered/Resolved]

NARRATIVE: CASE EVENT DATE: 20220123
